FAERS Safety Report 26042116 (Version 1)
Quarter: 2025Q4

REPORT INFORMATION
  Report Type: Report from Study
  Country: BR (occurrence: BR)
  Receive Date: 20251113
  Receipt Date: 20251113
  Transmission Date: 20260117
  Serious: Yes (Death, Hospitalization)
  Sender: ELI LILLY AND COMPANY
  Company Number: BR-ELI_LILLY_AND_COMPANY-BR202509023799

PATIENT
  Age: 90 Year
  Sex: Female

DRUGS (1)
  1. FORTEO [Suspect]
     Active Substance: TERIPARATIDE
     Indication: Osteoporosis
     Dosage: 20 UG, UNKNOWN
     Route: 058
     Dates: start: 20240523, end: 20250930

REACTIONS (11)
  - Septic shock [Fatal]
  - Cardiac failure congestive [Fatal]
  - Acute kidney injury [Fatal]
  - Atrial fibrillation [Fatal]
  - Pneumonia bacterial [Fatal]
  - Cardiac valve disease [Unknown]
  - Infection [Unknown]
  - Fatigue [Unknown]
  - Muscular weakness [Unknown]
  - Heart rate increased [Unknown]
  - Oxygen saturation decreased [Unknown]

NARRATIVE: CASE EVENT DATE: 20250717
